FAERS Safety Report 13873131 (Version 1)
Quarter: 2017Q3

REPORT INFORMATION
  Report Type: Spontaneous
  Country: SE (occurrence: SE)
  Receive Date: 20170816
  Receipt Date: 20170816
  Transmission Date: 20171127
  Serious: Yes (Hospitalization)
  Sender: FDA-Public Use
  Company Number: SE-TEVA-794534ACC

PATIENT
  Age: 32 Year
  Sex: Male

DRUGS (1)
  1. STESOLID [Suspect]
     Active Substance: DIAZEPAM
     Dates: start: 20170720, end: 20170720

REACTIONS (6)
  - Suicide attempt [Recovered/Resolved]
  - Acidosis [Recovered/Resolved]
  - Hypothermia [Recovered/Resolved]
  - Toxicity to various agents [Recovered/Resolved]
  - Loss of consciousness [Recovered/Resolved]
  - Hypoventilation [Recovered/Resolved]

NARRATIVE: CASE EVENT DATE: 20170720
